FAERS Safety Report 6749279-1 (Version None)
Quarter: 2010Q2

REPORT INFORMATION
  Report Type: 
  Country: None (occurrence: None)
  Receive Date: 20100601
  Receipt Date: 20100520
  Transmission Date: 20101027
  Serious: Yes (Hospitalization, Other)
  Sender: FDA-Public Use
  Company Number: PHHY2009CA40918

PATIENT
  Sex: Male

DRUGS (1)
  1. SANDOSTATIN LAR [Suspect]
     Indication: ACROMEGALY
     Dosage: 30 MG, EVERY 4 WEEKS
     Route: 030
     Dates: start: 19980102

REACTIONS (7)
  - ARTHRALGIA [None]
  - CARDIAC FAILURE CONGESTIVE [None]
  - CARDIAC VALVE DISEASE [None]
  - FALL [None]
  - HAEMORRHAGE [None]
  - SPINAL FRACTURE [None]
  - WALKING AID USER [None]
